FAERS Safety Report 7630520-8 (Version None)
Quarter: 2011Q3

REPORT INFORMATION
  Report Type: 
  Country: None (occurrence: None)
  Receive Date: 20110722
  Receipt Date: 20110719
  Transmission Date: 20111222
  Serious: Yes (Other)
  Sender: FDA-Public Use
  Company Number: JP-PFIZER INC-2011124140

PATIENT
  Age: 63 Year
  Sex: Female

DRUGS (2)
  1. NORVASC [Suspect]
     Dosage: 2.5 MG, 1X/DAY
     Route: 048
     Dates: start: 20101001
  2. LIVALO [Concomitant]
     Dosage: 1 MG, 1X/DAY
     Route: 048
     Dates: start: 20110301

REACTIONS (3)
  - EYELID PTOSIS [None]
  - ASTHENOPIA [None]
  - ABNORMAL SENSATION IN EYE [None]
